FAERS Safety Report 4929617-2 (Version None)
Quarter: 2006Q1

REPORT INFORMATION
  Report Type: 
  Country: None (occurrence: None)
  Receive Date: 20060127
  Receipt Date: 20051125
  Transmission Date: 20060701
  Serious: Yes (Other)
  Sender: FDA-Public Use
  Company Number: 2005161777

PATIENT
  Age: 46 Year
  Sex: Male
  Weight: 77.1115 kg

DRUGS (7)
  1. LYRICA [Suspect]
     Indication: NERVE INJURY
     Dosage: 600 MG (200 MG, 3 IN 1 D)
     Dates: start: 20051101
  2. OXYCONTIN [Concomitant]
  3. ULTRAM [Concomitant]
  4. WELLBUTRIN [Concomitant]
  5. XANAX [Concomitant]
  6. ZYRTEC [Concomitant]
  7. CIMETIDINE [Concomitant]

REACTIONS (2)
  - DISTURBANCE IN ATTENTION [None]
  - MEMORY IMPAIRMENT [None]
